FAERS Safety Report 25574694 (Version 1)
Quarter: 2025Q3

REPORT INFORMATION
  Report Type: Spontaneous
  Country: BR (occurrence: BR)
  Receive Date: 20250718
  Receipt Date: 20250718
  Transmission Date: 20251021
  Serious: Yes (Death, Life-Threatening, Hospitalization, Other)
  Sender: Unknown Manufacturer
  Company Number: BR-STRIDES ARCOLAB LIMITED-2025OS000063

PATIENT
  Age: 12 Year
  Sex: Female

DRUGS (6)
  1. AMANTADINE [Suspect]
     Active Substance: AMANTADINE
     Indication: Antiviral treatment
     Route: 065
     Dates: start: 20220413
  2. HUMAN IMMUNOGLOBULIN G [Suspect]
     Active Substance: HUMAN IMMUNOGLOBULIN G
     Indication: Rabies immunisation
     Route: 065
     Dates: start: 20220406
  3. SAPROPTERIN [Suspect]
     Active Substance: SAPROPTERIN
     Indication: Antiviral treatment
     Route: 065
     Dates: start: 20220413
  4. RABIES VACCINE [Suspect]
     Active Substance: RABIES VACCINE
     Indication: Rabies immunisation
     Route: 065
     Dates: start: 20220405
  5. RABIES VACCINE [Suspect]
     Active Substance: RABIES VACCINE
     Route: 065
     Dates: start: 20220408
  6. RABIES VACCINE [Suspect]
     Active Substance: RABIES VACCINE
     Route: 065
     Dates: start: 20220412

REACTIONS (2)
  - Condition aggravated [Fatal]
  - Drug ineffective [Fatal]

NARRATIVE: CASE EVENT DATE: 20220419
